FAERS Safety Report 25340389 (Version 1)
Quarter: 2025Q2

REPORT INFORMATION
  Report Type: Spontaneous
  Country: LT (occurrence: LT)
  Receive Date: 20250521
  Receipt Date: 20250521
  Transmission Date: 20250717
  Serious: Yes (Other)
  Sender: EXELIXIS
  Company Number: LT-IPSEN Group, Research and Development-2025-11214

PATIENT
  Age: 49 Year
  Sex: Male

DRUGS (2)
  1. CABOMETYX [Suspect]
     Active Substance: CABOZANTINIB S-MALATE
     Indication: Clear cell renal cell carcinoma
     Route: 065
  2. EVEROLIMUS [Suspect]
     Active Substance: EVEROLIMUS
     Indication: Product used for unknown indication
     Dates: start: 202407

REACTIONS (3)
  - Epilepsy [Unknown]
  - Malignant neoplasm progression [Unknown]
  - Anxiety disorder due to a general medical condition [Unknown]

NARRATIVE: CASE EVENT DATE: 20230901
